FAERS Safety Report 8659495 (Version 2)
Quarter: 2012Q4

REPORT INFORMATION
  Report Type: 
  Country: IT (occurrence: IT)
  Receive Date: 20120711
  Receipt Date: 20121102
  Transmission Date: 20130627
  Serious: Yes (Other)
  Sender: FDA-Public Use
  Company Number: IT-JNJFOC-20120701418

PATIENT
  Age: 32 Year
  Sex: Male

DRUGS (1)
  1. RISPERDAL [Suspect]
     Indication: DRUG ABUSE
     Route: 048
     Dates: start: 20120701, end: 20120702

REACTIONS (3)
  - Drug abuse [Unknown]
  - Sluggishness [Unknown]
  - Hypoglycaemia [Unknown]
